FAERS Safety Report 9511895 (Version 1)
Quarter: 2013Q3

REPORT INFORMATION
  Report Type: Spontaneous
  Country: NL (occurrence: None)
  Receive Date: 20130906
  Receipt Date: 20130906
  Transmission Date: 20140515
  Serious: Yes (Hospitalization)
  Sender: FDA-Public Use
  Company Number: 2013AP007724

PATIENT
  Age: 64 Year
  Sex: Female

DRUGS (9)
  1. FERRIPROX [Suspect]
     Indication: NEURODEGENERATIVE DISORDER
     Dates: start: 201304, end: 20130802
  2. MOVICOL [Concomitant]
  3. TOLBUTAMIDE [Concomitant]
  4. CALCIUM CARBONATE [Concomitant]
  5. RISPERIDONE [Concomitant]
  6. CITALOPRAM [Concomitant]
  7. DESLORATADINE [Concomitant]
  8. BUDESONIDE W/FORMOTEROL FUMARATE [Concomitant]
  9. COLECALCIFEROL [Concomitant]

REACTIONS (2)
  - Neutropenia [None]
  - Infection [None]
